FAERS Safety Report 6330430-2 (Version None)
Quarter: 2009Q3

REPORT INFORMATION
  Report Type: 
  Country: None (occurrence: None)
  Receive Date: 20090826
  Receipt Date: 20090826
  Transmission Date: 20100115
  Serious: Yes (Other)
  Sender: FDA-Public Use
  Company Number: None

PATIENT
  Age: 71 Year
  Sex: Male
  Weight: 74.8435 kg

DRUGS (1)
  1. CLINDAMYCIN [Suspect]
     Indication: OSTEOMYELITIS
     Dosage: 150 MG 1 TAB RX PER DAY MOUTH
     Route: 048
     Dates: start: 20090409

REACTIONS (3)
  - ABDOMINAL DISCOMFORT [None]
  - DIARRHOEA [None]
  - DRUG PRESCRIBING ERROR [None]
